FAERS Safety Report 13288421 (Version 1)
Quarter: 2017Q1

REPORT INFORMATION
  Report Type: Spontaneous
  Country: ES (occurrence: ES)
  Receive Date: 20170302
  Receipt Date: 20170302
  Transmission Date: 20170428
  Serious: Yes (Other)
  Sender: FDA-Public Use
  Company Number: ES-ABBVIE-17K-144-1883242-00

PATIENT
  Age: 40 Year
  Sex: Female
  Weight: 75 kg

DRUGS (1)
  1. HUMIRA [Suspect]
     Active Substance: ADALIMUMAB
     Indication: HIDRADENITIS
     Route: 058
     Dates: start: 20151113, end: 20160908

REACTIONS (3)
  - Arthritis [Not Recovered/Not Resolved]
  - Seronegative arthritis [Recovering/Resolving]
  - Synovitis [Unknown]

NARRATIVE: CASE EVENT DATE: 20160401
